FAERS Safety Report 7629607-5 (Version None)
Quarter: 2011Q3

REPORT INFORMATION
  Report Type: 
  Country: None (occurrence: None)
  Receive Date: 20110715
  Receipt Date: 20110701
  Transmission Date: 20111222
  Serious: Yes (Hospitalization)
  Sender: FDA-Public Use
  Company Number: 2011-1601

PATIENT
  Age: 35 Year
  Sex: Female
  Weight: 74.8 kg

DRUGS (4)
  1. ATENOLOL [Concomitant]
  2. LANREOTIDE AUTOGEL (LANREOTIDE) (LANREOTIDE ACETATE) [Suspect]
     Indication: ACROMEGALY
     Dosage: 90MG (90 MG, 1 IN 28 D), SUBCUTANEOUS ; 120MG (120 MG,1 IN 28 D), SUBCUTANEOUS
     Route: 058
     Dates: start: 20110114
  3. LANREOTIDE AUTOGEL (LANREOTIDE) (LANREOTIDE ACETATE) [Suspect]
     Indication: ACROMEGALY
     Dosage: 90MG (90 MG, 1 IN 28 D), SUBCUTANEOUS ; 120MG (120 MG,1 IN 28 D), SUBCUTANEOUS
     Route: 058
     Dates: start: 20110329
  4. MULTI-VITAMINS [Concomitant]

REACTIONS (1)
  - FAECALOMA [None]
